FAERS Safety Report 7688836-5 (Version None)
Quarter: 2011Q3

REPORT INFORMATION
  Report Type: 
  Country: None (occurrence: None)
  Receive Date: 20110817
  Receipt Date: 20110808
  Transmission Date: 20111222
  Serious: Yes (Other)
  Sender: FDA-Public Use
  Company Number: PHFR2011GB04674

PATIENT
  Sex: Male

DRUGS (1)
  1. CLOZAPINE [Suspect]
     Indication: SCHIZOPHRENIA
     Route: 048
     Dates: start: 20110603

REACTIONS (4)
  - HAEMOGLOBIN INCREASED [None]
  - CIRCULATORY COLLAPSE [None]
  - FEELING ABNORMAL [None]
  - CONFUSIONAL STATE [None]
